FAERS Safety Report 4273174-3 (Version None)
Quarter: 2004Q1

REPORT INFORMATION
  Report Type: 
  Country: None (occurrence: None)
  Receive Date: 20040116
  Receipt Date: 20021127
  Transmission Date: 20041129
  Serious: Yes (Hospitalization, Disabling)
  Sender: FDA-Public Use
  Company Number: WAES 0212USA00306

PATIENT
  Age: 62 Year
  Sex: Male

DRUGS (59)
  1. CORDARONE [Concomitant]
     Dates: start: 19991124, end: 19991201
  2. CORDARONE [Concomitant]
     Dates: start: 19991109, end: 19991101
  3. CORDARONE [Concomitant]
     Dates: start: 20010228
  4. CORDARONE [Concomitant]
     Dates: start: 20010228
  5. CORDARONE [Concomitant]
     Dates: start: 20000101
  6. CORDARONE [Concomitant]
     Dates: start: 20000101
  7. CORDARONE [Concomitant]
     Dates: start: 20010418
  8. LOTREL [Concomitant]
  9. AMOXIL [Concomitant]
     Dates: start: 20001204, end: 20001214
  10. AMOXIL [Concomitant]
     Dates: start: 20010228
  11. AMOXIL [Concomitant]
     Dates: start: 20001220, end: 20001230
  12. AMOXIL [Concomitant]
     Dates: start: 20020107
  13. ASPIRIN [Concomitant]
  14. LIPITOR [Concomitant]
  15. CIMETIDINE [Concomitant]
     Dates: start: 19980417
  16. MYCELEX [Concomitant]
     Dates: start: 20010909
  17. LANOXIN [Concomitant]
  18. DIGOXIN [Concomitant]
     Dates: start: 19980122
  19. CARDIZEM [Concomitant]
     Dates: start: 20000726
  20. CARDIZEM [Concomitant]
     Dates: start: 20010226
  21. CARDIZEM [Concomitant]
     Route: 048
  22. CARDIZEM [Concomitant]
     Dates: start: 19961218
  23. CARDIZEM [Concomitant]
     Dates: start: 19970820
  24. CARDIZEM [Concomitant]
  25. DILTIAZEM HYDROCHLORIDE [Concomitant]
     Dates: start: 19970820
  26. CARDURA [Concomitant]
     Dates: start: 19940626, end: 19941129
  27. CARDURA [Concomitant]
     Dates: start: 19991130
  28. CARDURA [Concomitant]
     Dates: start: 19980509
  29. FELODIPINE [Concomitant]
  30. NEURONTIN [Concomitant]
     Dates: start: 20000622
  31. GEMFIBROZIL [Concomitant]
     Dates: start: 19990401
  32. DIOVAN HCT [Concomitant]
  33. DIOVAN HCT [Concomitant]
     Dates: start: 19991109
  34. LORAZEPAM [Concomitant]
     Dates: start: 20000718
  35. MEVACOR [Concomitant]
     Dates: start: 19990113
  36. MEVACOR [Concomitant]
     Dates: start: 19990129
  37. MEVACOR [Concomitant]
     Route: 048
     Dates: start: 19980929
  38. GLUCOPHAGE [Concomitant]
     Dates: start: 20000101, end: 20020111
  39. GLUCOPHAGE [Concomitant]
     Dates: start: 20020101
  40. ROBAXIN [Concomitant]
     Route: 048
     Dates: start: 19980628
  41. TOPROL-XL [Concomitant]
  42. LOPRESSOR [Concomitant]
     Dates: start: 19990510
  43. NADOLOL [Concomitant]
     Dates: start: 20000101, end: 20000726
  44. NAPROXEN [Concomitant]
  45. NIACIN [Concomitant]
     Dates: start: 19980724, end: 19980911
  46. NIACIN [Concomitant]
     Dates: start: 19980717, end: 19980723
  47. NITROGLYCERIN [Concomitant]
  48. PRILOSEC [Concomitant]
     Dates: start: 19990113
  49. QUINAMM [Concomitant]
     Dates: start: 19980223
  50. RADIOGRAPHIC CONTRAST MEDIUM (UNSPECIFIED) [Suspect]
     Dates: start: 20010109, end: 20010109
  51. RANITIDINE-BC [Concomitant]
     Dates: start: 19990510
  52. ZOCOR [Suspect]
     Route: 048
     Dates: start: 19980519
  53. ZOCOR [Suspect]
     Route: 048
     Dates: start: 19980910
  54. ZOCOR [Suspect]
     Route: 048
     Dates: start: 20010926, end: 20020111
  55. ZOCOR [Suspect]
     Route: 048
     Dates: start: 19990101, end: 20010926
  56. TETANUS TOXOID [Concomitant]
     Route: 030
     Dates: start: 19980417
  57. DIOVAN [Concomitant]
  58. DIOVAN [Concomitant]
     Dates: start: 20010725
  59. COUMADIN [Concomitant]
     Route: 048
     Dates: start: 20001108, end: 20010926

REACTIONS (50)
  - ABASIA [None]
  - ALANINE AMINOTRANSFERASE INCREASED [None]
  - AORTIC VALVE SCLEROSIS [None]
  - ASTHENIA [None]
  - ATHEROSCLEROSIS [None]
  - ATRIAL FIBRILLATION [None]
  - ATRIAL FLUTTER [None]
  - ATRIOVENTRICULAR BLOCK FIRST DEGREE [None]
  - BACK PAIN [None]
  - BLOOD BILIRUBIN INCREASED [None]
  - BLOOD PRESSURE SYSTOLIC INCREASED [None]
  - BLOOD TRIGLYCERIDES INCREASED [None]
  - BLOOD UREA INCREASED [None]
  - CANDIDIASIS [None]
  - CAROTID ARTERY DISEASE [None]
  - CAROTID ARTERY OCCLUSION [None]
  - CHEST DISCOMFORT [None]
  - COUGH [None]
  - DIABETES MELLITUS [None]
  - DIABETIC RETINOPATHY [None]
  - DIZZINESS [None]
  - DYSPNOEA [None]
  - DYSPNOEA EXERTIONAL [None]
  - ERYTHEMA [None]
  - FEELING ABNORMAL [None]
  - FEELING JITTERY [None]
  - FLUSHING [None]
  - GASTROOESOPHAGEAL REFLUX DISEASE [None]
  - GILBERT'S SYNDROME [None]
  - HEART RATE IRREGULAR [None]
  - HIGH DENSITY LIPOPROTEIN DECREASED [None]
  - HYPERHIDROSIS [None]
  - INTERVERTEBRAL DISC DISPLACEMENT [None]
  - MITRAL VALVE INCOMPETENCE [None]
  - MUSCLE CRAMP [None]
  - MYALGIA [None]
  - NAUSEA [None]
  - NIGHT SWEATS [None]
  - ORAL CANDIDIASIS [None]
  - PAIN IN EXTREMITY [None]
  - PALPITATIONS [None]
  - PIGMENTED NAEVUS [None]
  - RENAL FAILURE ACUTE [None]
  - RHABDOMYOLYSIS [None]
  - SENSATION OF FOREIGN BODY [None]
  - SINUSITIS [None]
  - SWEAT DISCOLOURATION [None]
  - TONGUE DISORDER [None]
  - TRICUSPID VALVE INCOMPETENCE [None]
  - VOMITING [None]
